FAERS Safety Report 18129709 (Version 1)
Quarter: 2020Q3

REPORT INFORMATION
  Report Type: Spontaneous
  Country: US (occurrence: US)
  Receive Date: 20200810
  Receipt Date: 20200810
  Transmission Date: 20201103
  Serious: No
  Sender: FDA-Public Use
  Company Number: US-PERRIGO-19US010926

PATIENT
  Age: 74 Year
  Sex: Female
  Weight: 64.85 kg

DRUGS (11)
  1. MELATONIN [Concomitant]
     Active Substance: MELATONIN
     Indication: INSOMNIA
     Dosage: UNKNOWN, NIGHTLY
     Route: 065
     Dates: start: 2017
  2. ADVIL [Concomitant]
     Active Substance: IBUPROFEN
     Indication: PAIN
     Dosage: 200 MG, PRN
     Route: 048
  3. VITAMIN D3 [Concomitant]
     Active Substance: CHOLECALCIFEROL
     Indication: SUPPLEMENTATION THERAPY
     Dosage: UNK
     Route: 065
  4. ADVIL PM [Concomitant]
     Active Substance: DIPHENHYDRAMINE CITRATE\IBUPROFEN
     Indication: PAIN
     Dosage: UNK, PRN
     Route: 065
     Dates: start: 2017
  5. CENTRUM SILVER                     /02363801/ [Concomitant]
     Active Substance: MINERALS\VITAMINS
     Indication: SUPPLEMENTATION THERAPY
     Dosage: UNK
     Route: 065
  6. CITALOPRAM [Concomitant]
     Active Substance: CITALOPRAM HYDROBROMIDE
     Indication: INSOMNIA
     Dosage: UNKNOWN, NIGHTLY
     Route: 065
     Dates: start: 2017
  7. LORATADINE. [Suspect]
     Active Substance: LORATADINE
     Indication: DYSPNOEA
     Dosage: 10 MG, QD
     Route: 048
     Dates: start: 2016, end: 201907
  8. LORATADINE. [Suspect]
     Active Substance: LORATADINE
     Dosage: 10 MG, QD
     Route: 048
     Dates: start: 201908, end: 20190905
  9. VITAMIN B12 [Concomitant]
     Active Substance: CYANOCOBALAMIN
     Indication: SUPPLEMENTATION THERAPY
     Dosage: UNK
     Route: 065
  10. CALCIUM [Concomitant]
     Active Substance: CALCIUM
     Indication: SUPPLEMENTATION THERAPY
     Dosage: UNK
     Route: 065
  11. ADVIL PM [Concomitant]
     Active Substance: DIPHENHYDRAMINE CITRATE\IBUPROFEN
     Indication: INSOMNIA

REACTIONS (4)
  - Pruritus [Not Recovered/Not Resolved]
  - Expired product administered [Recovered/Resolved]
  - Drug effective for unapproved indication [Recovered/Resolved]
  - Urticaria [Not Recovered/Not Resolved]

NARRATIVE: CASE EVENT DATE: 2016
